FAERS Safety Report 16224250 (Version 1)
Quarter: 2019Q2

REPORT INFORMATION
  Report Type: Spontaneous
  Country: CN (occurrence: CN)
  Receive Date: 20190422
  Receipt Date: 20190422
  Transmission Date: 20190711
  Serious: Yes (Other)
  Sender: FDA-Public Use
  Company Number: CN-GLAXOSMITHKLINE-CN2019APC068286

PATIENT

DRUGS (10)
  1. ASPIRIN. [Concomitant]
     Active Substance: ASPIRIN
     Indication: THROMBOSIS PROPHYLAXIS
     Dosage: 0.1 G, QD
     Route: 048
     Dates: start: 20181226, end: 20190105
  2. SODIUM CHLORIDE. [Concomitant]
     Active Substance: SODIUM CHLORIDE
     Indication: VEHICLE SOLUTION USE
     Dosage: 250 ML, QD
     Route: 042
     Dates: start: 20181226, end: 20181227
  3. AMLODIPINE [Concomitant]
     Active Substance: AMLODIPINE BESYLATE
     Indication: BLOOD PRESSURE DECREASED
     Dosage: 5 MG, QD
     Route: 048
     Dates: start: 20181226, end: 20190105
  4. LIGUSTRAZINE HYDROCHLORIDE [Concomitant]
     Active Substance: LIGUSTRAZINE HYDROCHLORIDE
     Indication: PROPHYLAXIS
     Dosage: 10 ML, QD
     Route: 042
     Dates: start: 20181226, end: 20181227
  5. OXCARBAZEPINE. [Concomitant]
     Active Substance: OXCARBAZEPINE
     Indication: EPILEPSY
     Dosage: 450 MG, BID
     Route: 048
     Dates: start: 20181226, end: 20190105
  6. ROSUVASTATIN. [Concomitant]
     Active Substance: ROSUVASTATIN
     Indication: LIPIDS
     Dosage: 20 MG, QD
     Route: 048
     Dates: start: 20181226, end: 20190105
  7. SALVIAE MILTIORRHIZAE [Concomitant]
     Indication: PROPHYLAXIS
     Dosage: 10 ML, QD
     Route: 042
     Dates: start: 20181226, end: 20181227
  8. LAMICTAL [Suspect]
     Active Substance: LAMOTRIGINE
     Indication: EPILEPSY
     Dosage: 50 MG, BID
     Route: 048
     Dates: start: 20181227, end: 20181229
  9. IRBESARTAN. [Concomitant]
     Active Substance: IRBESARTAN
     Indication: BLOOD PRESSURE DECREASED
     Dosage: 150 MG, QD
     Route: 048
     Dates: start: 20181226, end: 20190105
  10. OXIRACETAM [Concomitant]
     Active Substance: OXIRACETAM
     Indication: BRAIN INJURY
     Dosage: 20 ML, QD
     Route: 042
     Dates: start: 20181226, end: 20190104

REACTIONS (4)
  - Hallucination [Recovering/Resolving]
  - Somnolence [Recovering/Resolving]
  - Affect lability [Recovering/Resolving]
  - Paranoia [Recovering/Resolving]

NARRATIVE: CASE EVENT DATE: 20181228
